FAERS Safety Report 13615181 (Version 1)
Quarter: 2017Q2

REPORT INFORMATION
  Report Type: Spontaneous
  Country: US (occurrence: US)
  Receive Date: 20170606
  Receipt Date: 20170606
  Transmission Date: 20170830
  Serious: Yes (Other)
  Sender: FDA-Public Use
  Company Number: US-PFIZER INC-2017157490

PATIENT
  Sex: Female

DRUGS (1)
  1. XELJANZ [Suspect]
     Active Substance: TOFACITINIB CITRATE
     Dosage: 5 MG, 2X/DAY

REACTIONS (15)
  - Flank pain [Unknown]
  - Joint swelling [Recovering/Resolving]
  - Joint range of motion decreased [Unknown]
  - Malaise [Unknown]
  - Fatigue [Unknown]
  - Dry eye [Unknown]
  - Rheumatoid arthritis [Unknown]
  - Product use in unapproved indication [Unknown]
  - Nodule [Unknown]
  - Myalgia [Unknown]
  - Arthralgia [Recovering/Resolving]
  - Neck pain [Unknown]
  - Rheumatoid nodule [Unknown]
  - Tenderness [Unknown]
  - Pleural effusion [Unknown]
